FAERS Safety Report 20977140 (Version 3)
Quarter: 2023Q2

REPORT INFORMATION
  Report Type: Report from Study
  Country: CN (occurrence: CN)
  Receive Date: 20220617
  Receipt Date: 20230410
  Transmission Date: 20230721
  Serious: Yes (Hospitalization)
  Sender: FDA-Public Use
  Company Number: CN-G1-000442

PATIENT

DRUGS (17)
  1. TRILACICLIB [Suspect]
     Active Substance: TRILACICLIB
     Indication: Myelosuppression
     Dosage: 240 MG/M2 ON DAY 1 AND 2 OF EACH CYCLE
     Route: 041
     Dates: start: 20211216, end: 20211231
  2. TRILACICLIB [Suspect]
     Active Substance: TRILACICLIB
     Dosage: 240 MG/M2 ON DAY 1 AND 2 OF EACH CYCLE
     Route: 041
     Dates: start: 20220210
  3. BEVACIZUMAB [Suspect]
     Active Substance: BEVACIZUMAB
     Dosage: 5 MG/KG ON DAY 1 OF EACH CYCLE
     Route: 041
     Dates: start: 20211216, end: 20211230
  4. BEVACIZUMAB [Suspect]
     Active Substance: BEVACIZUMAB
     Dosage: 5 MG/KG ON DAY 1 OF EACH CYCLE
     Route: 041
     Dates: start: 20220210
  5. FLUOROURACIL [Suspect]
     Active Substance: FLUOROURACIL
     Dosage: 2400 MG/M2 BY CONTINUOUS INFUSION OVER 48 HOURS STARTING ON DAY 1 OF EACH CYCLE
     Route: 041
     Dates: start: 20211216, end: 20220101
  6. FLUOROURACIL [Suspect]
     Active Substance: FLUOROURACIL
     Dosage: 2400 MG/M2 BY CONTINUOUS INFUSION OVER 48 HOURS STARTING ON DAY 1 OF EACH CYCLE
     Route: 041
     Dates: start: 20220210
  7. IRINOTECAN [Suspect]
     Active Substance: IRINOTECAN
     Dosage: 165 MG/M2 ON DAY 1 OF EACH CYCLE
     Route: 041
     Dates: start: 20211216, end: 20211230
  8. IRINOTECAN [Suspect]
     Active Substance: IRINOTECAN
     Dosage: 165 MG/M2 ON DAY 1 OF EACH CYCLE
     Route: 041
     Dates: start: 20220210
  9. LEUCOVORIN [Suspect]
     Active Substance: LEUCOVORIN
     Dosage: 165 MG/M2 ON DAY 1 OF EACH CYCLE
     Route: 041
     Dates: start: 20211216, end: 20211230
  10. LEUCOVORIN [Suspect]
     Active Substance: LEUCOVORIN
     Dosage: 165 MG/M2 ON DAY 1 OF EACH CYCLE
     Route: 041
     Dates: start: 20220210
  11. OXALIPLATIN [Suspect]
     Active Substance: OXALIPLATIN
     Dosage: 85 MG/M2 ON DAY 1 OF EACH CYCLE
     Route: 041
     Dates: start: 20211216, end: 20211230
  12. OXALIPLATIN [Suspect]
     Active Substance: OXALIPLATIN
     Dosage: 85 MG/M2 ON DAY 1 OF EACH CYCLE
     Route: 041
     Dates: start: 20220210
  13. AZASETRON HYDROCHLORIDE;SODIUM CHLORIDE [Concomitant]
     Indication: Prophylaxis of nausea and vomiting
     Dosage: 100 MILLILITER, QD
     Route: 042
     Dates: start: 20211215, end: 20211218
  14. AZASETRON HYDROCHLORIDE;SODIUM CHLORIDE [Concomitant]
     Dosage: 100 MILLILITER, QD
     Route: 042
     Dates: start: 20211230, end: 20211230
  15. AZASETRON HYDROCHLORIDE;SODIUM CHLORIDE [Concomitant]
     Dosage: 100 MILLILITER, QD
     Route: 042
     Dates: start: 20220210, end: 20220210
  16. HEPARIN SODIUM [Concomitant]
     Active Substance: HEPARIN SODIUM
     Indication: Tissue sealing
     Dosage: UNK UNK, QD
     Route: 042
     Dates: start: 20211216, end: 20211216
  17. HEPARIN SODIUM [Concomitant]
     Active Substance: HEPARIN SODIUM
     Dosage: UNK UNK, QD
     Route: 042
     Dates: start: 20220122, end: 20220122

REACTIONS (1)
  - Alanine aminotransferase increased [Recovering/Resolving]

NARRATIVE: CASE EVENT DATE: 20220112
